FAERS Safety Report 9122432 (Version 1)
Quarter: 2013Q1

REPORT INFORMATION
  Report Type: Spontaneous
  Country: SE (occurrence: SE)
  Receive Date: 20130227
  Receipt Date: 20130227
  Transmission Date: 20140127
  Serious: Yes (Death)
  Sender: FDA-Public Use
  Company Number: PHHY2013SE018855

PATIENT
  Sex: Male

DRUGS (5)
  1. LEPONEX [Suspect]
     Dosage: 100 MG, DAILY
     Route: 048
     Dates: start: 20120907
  2. OLANZAPINE [Suspect]
     Indication: SCHIZOPHRENIA
     Dosage: 20 UNK, DAILY
     Dates: start: 20111222
  3. OLANZAPINE [Suspect]
     Dosage: 30 MG, DAILY
  4. CLOZAPINE ACTAVIS [Suspect]
     Indication: SCHIZOPHRENIA
     Dosage: 200 MG, DAILY
     Dates: start: 20120914
  5. HALODOL [Concomitant]

REACTIONS (2)
  - Myocarditis [Fatal]
  - Cough [Unknown]
